FAERS Safety Report 24539585 (Version 1)
Quarter: 2024Q4

REPORT INFORMATION
  Report Type: Spontaneous
  Country: US (occurrence: None)
  Receive Date: 20241022
  Receipt Date: 20241022
  Transmission Date: 20250114
  Serious: Yes (Hospitalization)
  Sender: Public
  Company Number: None

PATIENT
  Age: 85 Year
  Sex: Male
  Weight: 107 kg

DRUGS (1)
  1. PROPRANOLOL HYDROCHLORIDE [Suspect]
     Active Substance: PROPRANOLOL HYDROCHLORIDE
     Indication: Essential tremor
     Dosage: FREQUENCY : TWICE A DAY;?
     Route: 048
     Dates: end: 20240322

REACTIONS (2)
  - Bradycardia [None]
  - Asthenia [None]

NARRATIVE: CASE EVENT DATE: 20240322
